FAERS Safety Report 6184764-5 (Version None)
Quarter: 2009Q2

REPORT INFORMATION
  Report Type: 
  Country: None (occurrence: None)
  Receive Date: 20090508
  Receipt Date: 20090504
  Transmission Date: 20091009
  Serious: Yes (Hospitalization, Other)
  Sender: FDA-Public Use
  Company Number: PHHY2009DE12216

PATIENT
  Sex: Male

DRUGS (1)
  1. SANDIMMUNE [Suspect]
     Indication: HEART TRANSPLANT
     Dosage: UNK
     Dates: start: 20041001, end: 20080101

REACTIONS (11)
  - AORTIC VALVE INCOMPETENCE [None]
  - BLADDER CANCER [None]
  - BLADDER NECK RESECTION [None]
  - BLADDER STENOSIS [None]
  - BLOOD URINE PRESENT [None]
  - CORONARY ARTERY DISEASE [None]
  - DYSURIA [None]
  - MITRAL VALVE INCOMPETENCE [None]
  - TRANSURETHRAL BLADDER RESECTION [None]
  - TRANSURETHRAL PROSTATECTOMY [None]
  - TRICUSPID VALVE INCOMPETENCE [None]
